FAERS Safety Report 6773071-5 (Version None)
Quarter: 2010Q2

REPORT INFORMATION
  Report Type: 
  Country: None (occurrence: None)
  Receive Date: 20100616
  Receipt Date: 20100604
  Transmission Date: 20101027
  Serious: Yes (Congenital Anomaly, Other)
  Sender: FDA-Public Use
  Company Number: US-PFIZER INC-2010044278

PATIENT
  Sex: Male
  Weight: 1.8 kg

DRUGS (1)
  1. GEODON [Suspect]
     Dosage: 40 MG, DAILY
     Route: 064

REACTIONS (5)
  - ABNORMAL PALMAR/PLANTAR CREASES [None]
  - CYTOGENETIC ABNORMALITY [None]
  - DEVELOPMENTAL DELAY [None]
  - DRUG EXPOSURE DURING PREGNANCY [None]
  - PIERRE ROBIN SYNDROME [None]
